FAERS Safety Report 15567415 (Version 3)
Quarter: 2019Q1

REPORT INFORMATION
  Report Type: Report from Study
  Country: US (occurrence: US)
  Receive Date: 20181030
  Receipt Date: 20190111
  Transmission Date: 20190417
  Serious: Yes (Hospitalization, Other)
  Sender: FDA-Public Use
  Company Number: US-SA-2018SA297538

PATIENT
  Age: 55 Year
  Sex: Female

DRUGS (2)
  1. VRAYLAR [Concomitant]
     Active Substance: CARIPRAZINE
  2. TERIFLUNOMIDE. [Suspect]
     Active Substance: TERIFLUNOMIDE
     Indication: MULTIPLE SCLEROSIS
     Dosage: 14 MG, QD
     Route: 048
     Dates: start: 20180925

REACTIONS (5)
  - Pain [Unknown]
  - Multiple sclerosis relapse [Unknown]
  - Gait disturbance [Unknown]
  - Drug ineffective [Unknown]
  - Bipolar disorder [Unknown]
